FAERS Safety Report 7742444-6 (Version None)
Quarter: 2011Q3

REPORT INFORMATION
  Report Type: 
  Country: None (occurrence: None)
  Receive Date: 20110830
  Receipt Date: 20110818
  Transmission Date: 20111222
  Serious: Yes (Other)
  Sender: FDA-Public Use
  Company Number: 2010SP064430

PATIENT
  Age: 27 Year
  Sex: Female
  Weight: 63.5036 kg

DRUGS (2)
  1. MULTI-VITAMIN [Concomitant]
  2. NUVARING [Suspect]
     Indication: CONTRACEPTION
     Dates: start: 20060301, end: 20081201

REACTIONS (11)
  - CHEST PAIN [None]
  - SCAR [None]
  - EMOTIONAL DISORDER [None]
  - DEEP VEIN THROMBOSIS [None]
  - THYROID DISORDER [None]
  - MUSCULOSKELETAL PAIN [None]
  - HYPERCOAGULATION [None]
  - MULTIPLE INJURIES [None]
  - DYSPNOEA [None]
  - MENTAL DISORDER [None]
  - ATELECTASIS [None]
